FAERS Safety Report 4965712-X (Version None)
Quarter: 2006Q2

REPORT INFORMATION
  Report Type: 
  Country: None (occurrence: None)
  Receive Date: 20060405
  Receipt Date: 20060405
  Transmission Date: 20061013
  Serious: Yes (Other)
  Sender: FDA-Public Use
  Company Number: None

PATIENT
  Sex: Female
  Weight: 73.0291 kg

DRUGS (2)
  1. OXYCONTIN [Suspect]
     Indication: BACK PAIN
     Dosage: 2 PO Q 8 HRS
     Route: 048
  2. OXYCONTIN [Suspect]
     Indication: NECK PAIN
     Dosage: 2 PO Q 8 HRS
     Route: 048

REACTIONS (1)
  - RASH [None]
